FAERS Safety Report 7480870-3 (Version None)
Quarter: 2011Q2

REPORT INFORMATION
  Report Type: 
  Country: None (occurrence: None)
  Receive Date: 20110506
  Receipt Date: 20110421
  Transmission Date: 20111010
  Serious: Yes (Other)
  Sender: FDA-Public Use
  Company Number: AUR-APL-2011-01380

PATIENT
  Age: 77 Year
  Sex: Male

DRUGS (10)
  1. SPIRONOLACTONE [Concomitant]
  2. ATORVASTATIN [Concomitant]
  3. CARVEDILOL [Suspect]
  4. ALLOPURINOL [Concomitant]
  5. FUROSEMIDE [Concomitant]
  6. AMLODIPINE [Concomitant]
  7. POTASSIUM CHLORIDE [Suspect]
  8. LISOPRESS [Suspect]
  9. INDAPAMIDE [Concomitant]
  10. ASPIRIN [Concomitant]

REACTIONS (3)
  - DRUG INTERACTION [None]
  - HYPERKALAEMIA [None]
  - HYPOTENSION [None]
